FAERS Safety Report 6682445-2 (Version None)
Quarter: 2010Q2

REPORT INFORMATION
  Report Type: 
  Country: None (occurrence: None)
  Receive Date: 20100415
  Receipt Date: 20100406
  Transmission Date: 20101027
  Serious: Yes (Hospitalization)
  Sender: FDA-Public Use
  Company Number: DE-WYE-G05893610

PATIENT
  Age: 44 Year
  Sex: Female

DRUGS (7)
  1. VENLAFAXINE HCL [Suspect]
     Indication: DEPRESSION
     Dosage: 225 MG PER DAY FROM UNKNOWN DATE UNTIL 23-AUG-2009
     Route: 048
  2. CYMBALTA [Interacting]
     Route: 048
     Dates: start: 20090823, end: 20090827
  3. TRIAMPUR COMPOSITUM [Concomitant]
     Route: 048
  4. DIPIPERON [Concomitant]
     Route: 048
     Dates: start: 20090817, end: 20090827
  5. QUILONORM RETARD [Interacting]
     Route: 048
     Dates: start: 20090810, end: 20090817
  6. QUILONORM RETARD [Interacting]
     Route: 048
     Dates: start: 20090818, end: 20090827
  7. THYRONAJOD [Concomitant]
     Route: 048

REACTIONS (4)
  - DRUG INTERACTION [None]
  - EYE MOVEMENT DISORDER [None]
  - NYSTAGMUS [None]
  - VISION BLURRED [None]
